FAERS Safety Report 4699167-X (Version None)
Quarter: 2005Q2

REPORT INFORMATION
  Report Type: 
  Country: None (occurrence: None)
  Receive Date: 20050624
  Receipt Date: 20050614
  Transmission Date: 20051028
  Serious: Yes (Other)
  Sender: FDA-Public Use
  Company Number: DE-JNJFOC-20050603828

PATIENT
  Sex: Male

DRUGS (1)
  1. CONCERTA [Suspect]
     Route: 049

REACTIONS (2)
  - BLOOD GLUCOSE INCREASED [None]
  - BLOOD INSULIN DECREASED [None]
